FAERS Safety Report 7804089-9 (Version None)
Quarter: 2011Q4

REPORT INFORMATION
  Report Type: 
  Country: None (occurrence: None)
  Receive Date: 20111010
  Receipt Date: 20110930
  Transmission Date: 20120403
  Serious: Yes (Hospitalization)
  Sender: FDA-Public Use
  Company Number: JP-ASTRAZENECA-2011SE59821

PATIENT
  Age: 81 Year
  Sex: Male
  Weight: 60 kg

DRUGS (30)
  1. JANUVIA [Concomitant]
     Route: 048
     Dates: start: 20100723, end: 20110110
  2. MIGLITOL [Concomitant]
     Indication: DIABETES MELLITUS
     Route: 048
     Dates: start: 20080331, end: 20110222
  3. CIRCANETTEN [Concomitant]
     Route: 048
     Dates: start: 20101028, end: 20101110
  4. NERIPROCT [Concomitant]
     Route: 054
     Dates: start: 20101028, end: 20101110
  5. SORENTMIN [Concomitant]
     Indication: INSOMNIA
     Route: 048
  6. ISOSORBIDE MONONITRATE [Concomitant]
     Indication: ANGINA PECTORIS
     Route: 048
  7. PLAVIX [Concomitant]
     Indication: CEREBRAL INFARCTION
     Route: 048
     Dates: start: 20070518
  8. PRORENAL [Concomitant]
     Indication: LUMBAR SPINAL STENOSIS
     Route: 048
     Dates: start: 20101118, end: 20110126
  9. HEMOCURON [Concomitant]
     Route: 048
     Dates: start: 20101028, end: 20101110
  10. NESINA [Concomitant]
     Route: 048
     Dates: start: 20110210
  11. LANIRAPID [Concomitant]
     Indication: ATRIAL FIBRILLATION
     Route: 048
  12. SIMVASTATIN [Concomitant]
     Indication: DYSLIPIDAEMIA
     Route: 048
  13. MAGNESIUM OXIDE HEAVY [Concomitant]
     Indication: GASTRIC ULCER
     Route: 048
  14. CYTOTEC [Concomitant]
     Indication: PROPHYLAXIS
     Route: 048
     Dates: start: 20100916
  15. MAGMITT [Concomitant]
     Indication: CONSTIPATION
     Route: 048
     Dates: start: 20101028
  16. PRORENAL [Concomitant]
     Route: 048
     Dates: start: 20110824
  17. CANDESARTAN CILEXETIL AND HYDROCHLOROTHIAZIDE [Suspect]
     Indication: HYPERTENSION
     Dosage: 1 DF EVERY DAY
     Route: 048
     Dates: start: 20100701
  18. WARFARIN SODIUM [Concomitant]
     Indication: ATRIAL FIBRILLATION
     Route: 048
  19. CEROCRAL [Concomitant]
     Indication: CEREBRAL INFARCTION
     Route: 048
     Dates: start: 20090316, end: 20110823
  20. AMITRIPTYLINE HCL [Concomitant]
     Indication: INSOMNIA
     Route: 048
     Dates: start: 20101117, end: 20110110
  21. METFORMIN HCL [Concomitant]
     Indication: DIABETES MELLITUS
     Route: 048
     Dates: start: 20110223, end: 20110623
  22. LANSOPRAZOLE [Concomitant]
     Indication: GASTRIC ULCER
     Route: 048
     Dates: start: 20050224
  23. ASPIRIN [Concomitant]
     Indication: ANGINA PECTORIS
     Route: 048
  24. JANUVIA [Concomitant]
     Indication: DIABETES MELLITUS
     Route: 048
     Dates: start: 20100701, end: 20100722
  25. DOGMATYL [Concomitant]
     Indication: INSOMNIA
     Route: 048
     Dates: start: 20100805, end: 20101116
  26. NESINA [Concomitant]
     Indication: DIABETES MELLITUS
     Route: 048
     Dates: start: 20110115, end: 20110209
  27. SUCRALFATE [Concomitant]
     Indication: GASTRIC ULCER
     Route: 048
  28. AMOBANTES [Concomitant]
     Indication: INSOMNIA
     Route: 048
     Dates: end: 20101214
  29. METFORMIN HCL [Concomitant]
     Indication: DIABETES MELLITUS
     Route: 048
     Dates: start: 20110624, end: 20110727
  30. AMARYL [Concomitant]
     Indication: DIABETES MELLITUS
     Route: 048
     Dates: start: 20110728

REACTIONS (2)
  - CEREBRAL INFARCTION [None]
  - NEURALGIA [None]
